FAERS Safety Report 5787406-3 (Version None)
Quarter: 2008Q2

REPORT INFORMATION
  Report Type: 
  Country: None (occurrence: None)
  Receive Date: 20080625
  Receipt Date: 20080618
  Transmission Date: 20081010
  Serious: Yes (Life-Threatening)
  Sender: FDA-Public Use
  Company Number: JP-ASTRAZENECA-2008SE03191

PATIENT
  Age: 0 Year
  Sex: Male
  Weight: 2 kg

DRUGS (1)
  1. BLOPRESS [Suspect]
     Indication: PRE-ECLAMPSIA
     Route: 064

REACTIONS (2)
  - FAILURE TO THRIVE [None]
  - NEPHROGENIC DIABETES INSIPIDUS [None]
